FAERS Safety Report 16140137 (Version 5)
Quarter: 2019Q3

REPORT INFORMATION
  Report Type: Report from Study
  Country: US (occurrence: US)
  Receive Date: 20190331
  Receipt Date: 20190917
  Transmission Date: 20191004
  Serious: Yes (Hospitalization, Other)
  Sender: FDA-Public Use
  Company Number: PHEH2019US013273

PATIENT
  Sex: Female

DRUGS (5)
  1. MILRINONE [Suspect]
     Active Substance: MILRINONE
     Indication: CARDIAC FAILURE
     Dosage: UNK
     Route: 065
     Dates: start: 201703, end: 201810
  2. CARVEDILOL. [Concomitant]
     Active Substance: CARVEDILOL
     Indication: CARDIAC FAILURE
     Dosage: UNK
     Route: 065
     Dates: start: 201702
  3. SPIRONOLACTONE. [Concomitant]
     Active Substance: SPIRONOLACTONE
     Indication: CARDIAC FAILURE
     Dosage: UNK
     Route: 065
     Dates: start: 201702
  4. POTASSIUM [Concomitant]
     Active Substance: POTASSIUM
     Indication: CARDIAC FAILURE
     Dosage: UNK
     Route: 065
     Dates: start: 201702
  5. ENTRESTO [Suspect]
     Active Substance: SACUBITRIL\VALSARTAN
     Indication: CARDIAC FAILURE
     Dosage: 100 MG (49MG SACUBITRIL/ 51 MG VALSARTAN), BID
     Route: 048
     Dates: start: 20181001

REACTIONS (10)
  - Cardiac failure [Unknown]
  - Fluid retention [Unknown]
  - Cough [Unknown]
  - Device dislocation [Unknown]
  - Dizziness [Not Recovered/Not Resolved]
  - Hypobarism [Unknown]
  - Malaise [Unknown]
  - Feeling abnormal [Unknown]
  - Hypotension [Unknown]
  - Rash [Unknown]
